FAERS Safety Report 10037699 (Version 1)
Quarter: 2014Q1

REPORT INFORMATION
  Report Type: Spontaneous
  Country: US (occurrence: None)
  Receive Date: 20140325
  Receipt Date: 20140325
  Transmission Date: 20141002
  Serious: Yes (Other)
  Sender: FDA-Public Use
  Company Number: None

PATIENT
  Age: 57 Year
  Sex: Female
  Weight: 104.33 kg

DRUGS (7)
  1. LEVAQUIN [Suspect]
     Dosage: 500 MG (1 IVPD)  QD  INTRAVENOUS
     Route: 042
     Dates: start: 20140313, end: 20140324
  2. LEVEMIR [Concomitant]
  3. GLIPIZIDE [Concomitant]
  4. METFORMIN [Concomitant]
  5. MORPHINE [Concomitant]
  6. PERCOCET [Concomitant]
  7. PROPRANOLOL [Concomitant]

REACTIONS (1)
  - Pruritus generalised [None]
